FAERS Safety Report 4925333-1 (Version None)
Quarter: 2006Q1

REPORT INFORMATION
  Report Type: 
  Country: None (occurrence: None)
  Receive Date: 20060228
  Receipt Date: 20051205
  Transmission Date: 20060701
  Serious: Yes (Life-Threatening)
  Sender: FDA-Public Use
  Company Number: FR-BOEHRINGER INGELHEIM PHARMACEUTICALS, INC.-2005-FF-00897FF

PATIENT
  Age: 57 Year
  Sex: Female

DRUGS (6)
  1. MOBIC [Suspect]
     Indication: RHEUMATOID ARTHRITIS
     Route: 048
     Dates: start: 20000501
  2. MOBIC [Suspect]
     Route: 048
     Dates: start: 20051025, end: 20051026
  3. KENACORT [Suspect]
     Route: 030
     Dates: start: 20051021, end: 20051021
  4. NOVATREX [Suspect]
     Route: 048
     Dates: start: 20051025, end: 20051025
  5. OMEPRAZOLE [Concomitant]
     Dates: end: 20051027
  6. NOCTAMIDE [Concomitant]
     Dates: end: 20051027

REACTIONS (1)
  - ANGIONEUROTIC OEDEMA [None]
